FAERS Safety Report 4699496-X (Version None)
Quarter: 2005Q2

REPORT INFORMATION
  Report Type: 
  Country: None (occurrence: None)
  Receive Date: 20050624
  Receipt Date: 20050616
  Transmission Date: 20051028
  Serious: Yes (Other)
  Sender: FDA-Public Use
  Company Number: PHEH2005US06876

PATIENT

DRUGS (1)
  1. ZOMETA [Suspect]
     Dosage: UNK MONTHLY
     Route: 042

REACTIONS (1)
  - ASEPTIC NECROSIS BONE [None]
